FAERS Safety Report 6201871-9 (Version None)
Quarter: 2009Q2

REPORT INFORMATION
  Report Type: 
  Country: None (occurrence: None)
  Receive Date: 20090526
  Receipt Date: 20090512
  Transmission Date: 20091009
  Serious: Yes (Life-Threatening)
  Sender: FDA-Public Use
  Company Number: B0573670A

PATIENT
  Age: 68 Year
  Sex: Female
  Weight: 94.8 kg

DRUGS (7)
  1. ALLI [Suspect]
     Dosage: 180MG PER DAY
     Route: 048
     Dates: start: 20090423, end: 20090425
  2. VENTOLIN [Concomitant]
     Route: 055
  3. FLUTICASONE PROPIONATE [Concomitant]
     Route: 055
  4. CARDURA [Concomitant]
  5. FRUSEMIDE [Concomitant]
  6. LEVOTHYROXINE SODIUM [Concomitant]
  7. SLO-PHYLLIN [Concomitant]

REACTIONS (1)
  - ANAPHYLACTIC REACTION [None]
